FAERS Safety Report 8451627-1 (Version None)
Quarter: 2012Q2

REPORT INFORMATION
  Report Type: 
  Country: None (occurrence: None)
  Receive Date: 20120620
  Receipt Date: 20120309
  Transmission Date: 20120825
  Serious: No
  Sender: FDA-Public Use
  Company Number: US-VERTEX PHARMACEUTICALS INC.-AE-2012-003470

PATIENT
  Sex: Female
  Weight: 94.886 kg

DRUGS (3)
  1. COPEGUS [Concomitant]
     Indication: HEPATITIS C
     Route: 048
     Dates: start: 20120226
  2. PEGASYS [Concomitant]
     Indication: HEPATITIS C
     Route: 058
     Dates: start: 20120226
  3. INCIVEK [Suspect]
     Indication: HEPATITIS C
     Route: 048
     Dates: start: 20120226

REACTIONS (7)
  - HAEMORRHOIDS [None]
  - DYSGEUSIA [None]
  - ANAL PRURITUS [None]
  - DIARRHOEA [None]
  - SINUS HEADACHE [None]
  - EYE PAIN [None]
  - ANORECTAL DISCOMFORT [None]
